FAERS Safety Report 24323415 (Version 1)
Quarter: 2024Q3

REPORT INFORMATION
  Report Type: Spontaneous
  Country: NL (occurrence: NL)
  Receive Date: 20240916
  Receipt Date: 20240916
  Transmission Date: 20241017
  Serious: Yes (Other)
  Sender: TEVA
  Company Number: None

PATIENT
  Age: 53 Year
  Sex: Female
  Weight: 63 kg

DRUGS (1)
  1. CLOPIDOGREL [Suspect]
     Active Substance: CLOPIDOGREL BISULFATE
     Indication: Prophylaxis
     Dosage: THIS CONCERNS IRREGULAR USE BY THE PATIENT: BRAND NAME NOT SPECIFIED
     Route: 065
     Dates: start: 20180131

REACTIONS (2)
  - Transient ischaemic attack [Recovered/Resolved]
  - Treatment noncompliance [Recovered/Resolved]
